FAERS Safety Report 19706711 (Version 1)
Quarter: 2021Q3

REPORT INFORMATION
  Report Type: Spontaneous
  Country: US (occurrence: US)
  Receive Date: 20210817
  Receipt Date: 20210817
  Transmission Date: 20211014
  Serious: Yes (Other)
  Sender: FDA-Public Use
  Company Number: NVSC2021US179298

PATIENT
  Sex: Male

DRUGS (1)
  1. MEKINIST [Suspect]
     Active Substance: TRAMETINIB DIMETHYL SULFOXIDE
     Indication: COLON CANCER
     Dosage: 1 MG DAILY
     Route: 048
     Dates: start: 202106

REACTIONS (3)
  - Malignant neoplasm progression [Unknown]
  - Colon cancer [Unknown]
  - Product use in unapproved indication [Unknown]
